FAERS Safety Report 9111210 (Version 1)
Quarter: 2013Q1

REPORT INFORMATION
  Report Type: Spontaneous
  Country: US (occurrence: US)
  Receive Date: 20130219
  Receipt Date: 20130219
  Transmission Date: 20140127
  Serious: No
  Sender: FDA-Public Use
  Company Number: US-BRISTOL-MYERS SQUIBB COMPANY-17185588

PATIENT
  Age: 57 Year
  Sex: Female

DRUGS (4)
  1. ORENCIA FOR INJ [Suspect]
  2. LEFLUNOMIDE [Concomitant]
  3. PREDNISONE [Concomitant]
  4. NAPROXEN [Concomitant]

REACTIONS (2)
  - Upper respiratory tract infection [Unknown]
  - Contusion [Unknown]
